FAERS Safety Report 6722534-7 (Version None)
Quarter: 2010Q2

REPORT INFORMATION
  Report Type: 
  Country: None (occurrence: None)
  Receive Date: 20100512
  Receipt Date: 20100506
  Transmission Date: 20101027
  Serious: Yes (Hospitalization)
  Sender: FDA-Public Use
  Company Number: RO-ROCHE-701761

PATIENT
  Sex: Female
  Weight: 54 kg

DRUGS (3)
  1. RIBAVIRIN [Suspect]
     Indication: HEPATITIS C
     Dosage: DOSE: 1000, FREQUENCY: DAILY, STOPPED BETWEEN 01 MAY AND 05 MAY 2010
     Route: 048
     Dates: start: 20091106
  2. RIBAVIRIN [Suspect]
     Route: 048
     Dates: start: 20100505
  3. PEGINTERFERON ALFA-2A [Suspect]
     Indication: HEPATITIS C
     Route: 065
     Dates: start: 20091106

REACTIONS (1)
  - BILIARY COLIC [None]
